FAERS Safety Report 22090078 (Version 1)
Quarter: 2023Q1

REPORT INFORMATION
  Report Type: Spontaneous
  Country: US (occurrence: None)
  Receive Date: 20230313
  Receipt Date: 20230313
  Transmission Date: 20230418
  Serious: Yes (Other)
  Sender: FDA-Public Use
  Company Number: None

PATIENT
  Age: 33 Year
  Sex: Female
  Weight: 117 kg

DRUGS (2)
  1. AIMOVIG [Suspect]
     Active Substance: ERENUMAB-AOOE
     Indication: Migraine
     Dosage: OTHER FREQUENCY : 1X PER MONTH;?
     Route: 030
     Dates: start: 20230209
  2. RIZATRIPTAN [Concomitant]

REACTIONS (3)
  - Depression [None]
  - Fatigue [None]
  - Injection related reaction [None]

NARRATIVE: CASE EVENT DATE: 20230313
